FAERS Safety Report 4803148-2 (Version None)
Quarter: 2005Q4

REPORT INFORMATION
  Report Type: 
  Country: None (occurrence: None)
  Receive Date: 20051019
  Receipt Date: 20051004
  Transmission Date: 20060501
  Serious: Yes (Hospitalization)
  Sender: FDA-Public Use
  Company Number: AU-MERCK-0510AUS00079

PATIENT
  Sex: Male

DRUGS (3)
  1. ZOCOR [Suspect]
     Route: 048
     Dates: start: 20040101, end: 20050901
  2. ZOCOR [Suspect]
     Route: 048
     Dates: end: 20040101
  3. ZOCOR [Suspect]
     Route: 048
     Dates: start: 20050901

REACTIONS (8)
  - ARTHRALGIA [None]
  - CARDIAC DISORDER [None]
  - DRUG INEFFECTIVE [None]
  - INSOMNIA [None]
  - MALAISE [None]
  - MUSCLE SPASMS [None]
  - MYALGIA [None]
  - PARAESTHESIA [None]
